FAERS Safety Report 23201245 (Version 2)
Quarter: 2023Q4

REPORT INFORMATION
  Report Type: Spontaneous
  Country: US (occurrence: US)
  Receive Date: 20231118
  Receipt Date: 20231212
  Transmission Date: 20240109
  Serious: No
  Sender: FDA-Public Use
  Company Number: US-SA-SAC20231111000041

PATIENT
  Age: 56 Year
  Sex: Male

DRUGS (5)
  1. DUPIXENT [Suspect]
     Active Substance: DUPILUMAB
     Indication: Dermatitis allergic
     Dosage: 600 MG, 1X
     Route: 058
  2. DUPIXENT [Suspect]
     Active Substance: DUPILUMAB
     Indication: Dermatitis atopic
     Dosage: 300 MG, QOW
     Route: 058
  3. AVEENO [Concomitant]
     Active Substance: DIMETHICONE\HOMOSALATE\OCTINOXATE\OCTISALATE\TITANIUM DIOXIDE
     Indication: Eczema
  4. OPZELURA [Concomitant]
     Active Substance: RUXOLITINIB PHOSPHATE
     Indication: Eczema
     Dosage: BID
  5. EUCERIN [PARAFFIN, LIQUID;PETROLATUM;WOOL FAT] [Concomitant]

REACTIONS (4)
  - Sleep disorder due to a general medical condition [Unknown]
  - Rash pruritic [Unknown]
  - Skin exfoliation [Unknown]
  - Pruritus [Unknown]
